FAERS Safety Report 21252884 (Version 2)
Quarter: 2022Q4

REPORT INFORMATION
  Report Type: Spontaneous
  Country: US (occurrence: US)
  Receive Date: 20220825
  Receipt Date: 20221121
  Transmission Date: 20230113
  Serious: No
  Sender: FDA-Public Use
  Company Number: US-BIOCON-BCN-2022-000895

PATIENT
  Age: 62 Year
  Sex: Male
  Weight: 102.3 kg

DRUGS (4)
  1. EVEROLIMUS [Suspect]
     Active Substance: EVEROLIMUS
     Indication: Carcinoid tumour
     Dates: start: 20220629
  2. EVEROLIMUS [Suspect]
     Active Substance: EVEROLIMUS
     Indication: Neoplasm malignant
  3. LANREOTIDE [Concomitant]
     Active Substance: LANREOTIDE
     Indication: Neoplasm malignant
     Dosage: ONE INJECTION EVERY 21 DAYS
     Dates: start: 20211223
  4. LANREOTIDE [Concomitant]
     Active Substance: LANREOTIDE
     Indication: Carcinoid tumour

REACTIONS (3)
  - Accidental exposure to product packaging [Unknown]
  - Product dose omission issue [Unknown]
  - No adverse event [Unknown]
